FAERS Safety Report 18889495 (Version 1)
Quarter: 2021Q1

REPORT INFORMATION
  Report Type: Spontaneous
  Country: US (occurrence: US)
  Receive Date: 20210213
  Receipt Date: 20210213
  Transmission Date: 20210420
  Serious: No
  Sender: FDA-Public Use
  Company Number: US-SA-2021SA043712

PATIENT
  Age: 70 Year
  Sex: Female

DRUGS (1)
  1. DUPIXENT [Suspect]
     Active Substance: DUPILUMAB
     Route: 065

REACTIONS (6)
  - Pruritus [Unknown]
  - Pain [Unknown]
  - Skin burning sensation [Unknown]
  - Sleep disorder [Unknown]
  - Skin disorder [Unknown]
  - Condition aggravated [Unknown]
